FAERS Safety Report 10053423 (Version 1)
Quarter: 2014Q2

REPORT INFORMATION
  Report Type: Spontaneous
  Country: SE (occurrence: SE)
  Receive Date: 20140402
  Receipt Date: 20140402
  Transmission Date: 20141212
  Serious: Yes (Death)
  Sender: FDA-Public Use
  Company Number: SE-BRISTOL-MYERS SQUIBB COMPANY-20562872

PATIENT
  Sex: Male

DRUGS (1)
  1. ABILIFY TABS [Suspect]
     Indication: SCHIZOPHRENIA

REACTIONS (2)
  - Death [Fatal]
  - Paraesthesia [Unknown]
